FAERS Safety Report 6206201-4 (Version None)
Quarter: 2009Q2

REPORT INFORMATION
  Report Type: 
  Country: None (occurrence: None)
  Receive Date: 20090526
  Receipt Date: 20090520
  Transmission Date: 20091009
  Serious: Yes (Hospitalization)
  Sender: FDA-Public Use
  Company Number: 2009NI0119

PATIENT
  Age: 70 Year
  Sex: Female
  Weight: 80.7403 kg

DRUGS (7)
  1. NITROLINGUAL PUMPSPRAY [Suspect]
     Indication: ANGINA PECTORIS
     Dosage: 1-2 SPRAYS, AS NEEDED
     Dates: start: 20090201, end: 20090401
  2. RENEXA [Concomitant]
  3. NORVASC [Concomitant]
  4. DIOVAN [Concomitant]
  5. PLAVIX [Concomitant]
  6. ASPIRIN [Concomitant]
  7. ISOSORBIDE [Concomitant]

REACTIONS (6)
  - DEVICE MALFUNCTION [None]
  - DRUG INEFFECTIVE [None]
  - DYSPEPSIA [None]
  - MITRAL VALVE DISEASE [None]
  - MYOCARDIAL INFARCTION [None]
  - PRODUCT TASTE ABNORMAL [None]
